FAERS Safety Report 9441185 (Version 2)
Quarter: 2013Q3

REPORT INFORMATION
  Report Type: Report from Study
  Country: GB (occurrence: GB)
  Receive Date: 20130805
  Receipt Date: 20130812
  Transmission Date: 20140515
  Serious: Yes (Other)
  Sender: FDA-Public Use
  Company Number: GB-VERTEX PHARMACEUTICALS INC-2013-008522

PATIENT
  Age: 56 Year
  Sex: Male

DRUGS (3)
  1. VX-950 (TELAPREVIR) [Suspect]
     Indication: HEPATITIS C
     Dosage: 750 MG, TID, TABLET
     Route: 048
     Dates: start: 20130724
  2. PEG INTERFERON [Suspect]
     Indication: HEPATITIS C
     Dosage: UNK UNK, QW
     Route: 058
     Dates: start: 20130724
  3. RIBAVIRIN [Suspect]
     Indication: HEPATITIS C
     Dosage: TABLET, BID
     Route: 048
     Dates: start: 20130724

REACTIONS (7)
  - Vision blurred [Not Recovered/Not Resolved]
  - Musculoskeletal pain [Not Recovered/Not Resolved]
  - Constipation [Not Recovered/Not Resolved]
  - Abnormal dreams [Not Recovered/Not Resolved]
  - Nausea [Not Recovered/Not Resolved]
  - Diarrhoea [Not Recovered/Not Resolved]
  - Pruritus [Not Recovered/Not Resolved]
